FAERS Safety Report 4487657-4 (Version None)
Quarter: 2004Q4

REPORT INFORMATION
  Report Type: 
  Country: None (occurrence: None)
  Receive Date: 20041025
  Receipt Date: 20041020
  Transmission Date: 20050328
  Serious: Yes (Death, Life-Threatening)
  Sender: FDA-Public Use
  Company Number: 2004-DE-04970DE

PATIENT
  Age: 58 Year
  Sex: Male

DRUGS (4)
  1. SIFROL (PRAMIPEXOLE DIHYCHLORIDE) (TA) (PRAMIPEXOLE) [Suspect]
     Indication: PARKINSON'S DISEASE
     Dosage: 3.15 MG (0.7 MG) PO
     Route: 048
     Dates: start: 20040819, end: 20040916
  2. COMTESS (ENTACARPONE) (NR) [Concomitant]
  3. MADOPAR (MADOPAR0 (NR) [Concomitant]
  4. DICLOFENAC (DICLOFENAC) (GL) [Concomitant]

REACTIONS (6)
  - APNOEA [None]
  - ARRHYTHMIA [None]
  - FREEZING PHENOMENON [None]
  - PULMONARY EMBOLISM [None]
  - SPONDYLOLISTHESIS [None]
  - SUDDEN CARDIAC DEATH [None]
